FAERS Safety Report 4934832-8 (Version None)
Quarter: 2006Q1

REPORT INFORMATION
  Report Type: 
  Country: None (occurrence: None)
  Receive Date: 20060307
  Receipt Date: 20050607
  Transmission Date: 20060701
  Serious: Yes (Hospitalization, Other)
  Sender: FDA-Public Use
  Company Number: US-MERCK-0506USA01057

PATIENT
  Age: 53 Year
  Sex: Female
  Weight: 103 kg

DRUGS (2)
  1. VIOXX [Suspect]
     Indication: ARTHRALGIA
     Route: 048
     Dates: start: 20000504, end: 20040901
  2. VIOXX [Suspect]
     Indication: MUSCULOSKELETAL STIFFNESS
     Route: 048
     Dates: start: 20000504, end: 20040901

REACTIONS (14)
  - ARTHRALGIA [None]
  - ARTHROPATHY [None]
  - DIABETES MELLITUS [None]
  - DYSPNOEA EXERTIONAL [None]
  - GASTROINTESTINAL HAEMORRHAGE [None]
  - HYPOTHYROIDISM [None]
  - INSOMNIA [None]
  - IRON DEFICIENCY ANAEMIA [None]
  - LIPOMA [None]
  - PLANTAR FASCIITIS [None]
  - PULMONARY EMBOLISM [None]
  - SMALL INTESTINAL OBSTRUCTION [None]
  - STAPHYLOCOCCAL INFECTION [None]
  - SUICIDE ATTEMPT [None]
